FAERS Safety Report 5974025-9 (Version None)
Quarter: 2008Q4

REPORT INFORMATION
  Report Type: 
  Country: None (occurrence: None)
  Receive Date: 20081125
  Receipt Date: 20081110
  Transmission Date: 20090506
  Serious: Yes (Hospitalization)
  Sender: FDA-Public Use
  Company Number: 1000001753

PATIENT
  Age: 50 Year
  Sex: Female

DRUGS (2)
  1. ESCITALOPRAM OXALATE [Suspect]
     Dosage: 10 MG (10 MG, 1 IN 1 D), ORAL
     Route: 048
     Dates: start: 20061123, end: 20061124
  2. ESCITALOPRAM OXALATE [Suspect]
     Dosage: 5 MG (5 MG, 1 IN 1 D), ORAL
     Route: 048
     Dates: start: 20061121, end: 20061122

REACTIONS (6)
  - AGITATION [None]
  - DERMATITIS ALLERGIC [None]
  - EYELID OEDEMA [None]
  - FACE OEDEMA [None]
  - HEADACHE [None]
  - HYPOAESTHESIA FACIAL [None]
